FAERS Safety Report 7864645-9 (Version None)
Quarter: 2011Q4

REPORT INFORMATION
  Report Type: 
  Country: None (occurrence: None)
  Receive Date: 20111028
  Receipt Date: 20111021
  Transmission Date: 20120403
  Serious: Yes (Death, Life-Threatening, Hospitalization)
  Sender: FDA-Public Use
  Company Number: FR-SANOFI-AVENTIS-2011SA052609

PATIENT
  Age: 78 Year
  Sex: Male
  Weight: 82 kg

DRUGS (6)
  1. VALSARTAN/HYDROCHLOROTHIAZIDE [Concomitant]
  2. ZOFRAN [Concomitant]
     Route: 042
     Dates: start: 20110801
  3. TAXOTERE [Suspect]
     Route: 042
     Dates: start: 20110801, end: 20110801
  4. TAXOTERE [Suspect]
     Route: 042
     Dates: start: 20110801, end: 20110801
  5. PREDNISOLONE [Concomitant]
     Indication: PREMEDICATION
     Dates: start: 20110801
  6. LOVENOX [Suspect]
     Route: 058
     Dates: start: 20110802

REACTIONS (3)
  - CEREBRAL HAEMORRHAGE [None]
  - VOMITING [None]
  - THROMBOCYTOPENIA [None]
